FAERS Safety Report 19432960 (Version 2)
Quarter: 2021Q4

REPORT INFORMATION
  Report Type: Report from Study
  Country: NL (occurrence: NL)
  Receive Date: 20210618
  Receipt Date: 20211007
  Transmission Date: 20220303
  Serious: Yes (Death, Other)
  Sender: FDA-Public Use
  Company Number: NL-SA-SAC20210421000835

PATIENT

DRUGS (3)
  1. PRALUENT [Suspect]
     Active Substance: ALIROCUMAB
     Indication: Primary hypercholesterolaemia
     Dosage: 150 MG/ML, QOW
     Route: 058
     Dates: start: 20171128
  2. COVID-19 VACCINE [Concomitant]
     Indication: COVID-19 immunisation
     Dosage: UNK
     Dates: start: 20210407
  3. EZETIMIBE [Concomitant]
     Active Substance: EZETIMIBE
     Dosage: 1 DF, BID

REACTIONS (5)
  - Sepsis [Fatal]
  - Injection site haematoma [Unknown]
  - Injection site pain [Unknown]
  - Injection site bruising [Recovered/Resolved]
  - Injection site swelling [Recovered/Resolved]

NARRATIVE: CASE EVENT DATE: 20210418
